FAERS Safety Report 6998515-5 (Version None)
Quarter: 2010Q3

REPORT INFORMATION
  Report Type: 
  Country: None (occurrence: None)
  Receive Date: 20100920
  Receipt Date: 20100412
  Transmission Date: 20110219
  Serious: Yes (Hospitalization)
  Sender: FDA-Public Use
  Company Number: US-ASTRAZENECA-2009UW17065

PATIENT
  Age: 14683 Day
  Sex: Male

DRUGS (8)
  1. SEROQUEL [Suspect]
     Route: 048
     Dates: start: 20070126
  2. DIAZEPAM [Concomitant]
     Dates: start: 20061025
  3. RISPERDAL [Concomitant]
     Dates: start: 20061116
  4. DEPAKOTE ER [Concomitant]
     Dates: start: 20061127
  5. MIRTAZAPINE [Concomitant]
     Dates: start: 20061127
  6. LAMICTAL [Concomitant]
     Dates: start: 20061127
  7. BENZTROPINE MESYLATE [Concomitant]
     Dates: start: 20070126
  8. ZOLPIDEM TARTRATE [Concomitant]
     Dates: start: 20070824

REACTIONS (2)
  - DIABETIC KETOACIDOSIS [None]
  - TYPE 2 DIABETES MELLITUS [None]
